FAERS Safety Report 13940398 (Version 2)
Quarter: 2017Q3

REPORT INFORMATION
  Report Type: Spontaneous
  Country: US (occurrence: US)
  Receive Date: 20170906
  Receipt Date: 20170908
  Transmission Date: 20171127
  Serious: Yes (Life-Threatening, Hospitalization, Other)
  Sender: FDA-Public Use
  Company Number: US-PFIZER INC-2017382792

PATIENT
  Age: 24 Year
  Sex: Female

DRUGS (25)
  1. CYTARABINE. [Suspect]
     Active Substance: CYTARABINE
     Indication: ACUTE MYELOID LEUKAEMIA
     Dosage: 100 MG/M2, DAILY (CONTINUOUS INFUSION OVER 24 H DAILY FOR SEVEN DAYS)
  2. CEFEPIME [Concomitant]
     Active Substance: CEFEPIME HYDROCHLORIDE
     Dosage: UNK
  3. DOCUSATE CALCIUM. [Concomitant]
     Active Substance: DOCUSATE CALCIUM
     Dosage: UNK
  4. METFORMIN [Concomitant]
     Active Substance: METFORMIN HYDROCHLORIDE
     Dosage: UNK
  5. SODIUM CHLORIDE. [Concomitant]
     Active Substance: SODIUM CHLORIDE
     Dosage: UNK
     Route: 045
  6. HYDROXYZINE [Concomitant]
     Active Substance: HYDROXYZINE HYDROCHLORIDE
     Dosage: UNK, AS NEEDED
  7. LORAZEPAM. [Concomitant]
     Active Substance: LORAZEPAM
     Dosage: UNK, AS NEEDED
  8. LEVOFLOXACIN. [Concomitant]
     Active Substance: LEVOFLOXACIN
     Dosage: UNK
  9. ACETAMINOPHEN. [Concomitant]
     Active Substance: ACETAMINOPHEN
     Dosage: UNK, AS NEEDED
  10. HYDROCODONE/ACETAMINOPHEN [Concomitant]
     Active Substance: ACETAMINOPHEN\HYDROCODONE
     Dosage: UNK, AS NEEDED
  11. LOPERAMIDE [Concomitant]
     Active Substance: LOPERAMIDE
     Dosage: UNK, AS NEEDED
  12. IDARUBICIN [Concomitant]
     Active Substance: IDARUBICIN
     Indication: ABSCESS
     Dosage: 12 MG/M2, DAILY (FOR THREE DAYS)
     Route: 042
  13. DESOGESTREL + ETINILESTRADIOL [Concomitant]
     Dosage: UNK
  14. TRAMADOL. [Concomitant]
     Active Substance: TRAMADOL
     Dosage: UNK, AS NEEDED
  15. ACYCLOVIR. [Concomitant]
     Active Substance: ACYCLOVIR
     Dosage: UNK
  16. DEXAMETHASONE. [Concomitant]
     Active Substance: DEXAMETHASONE
     Dosage: UNK
  17. GUAIFENESIN/CODEINE [Concomitant]
     Active Substance: CODEINE PHOSPHATE\GUAIFENESIN
     Dosage: UNK, AS NEEDED
  18. CYTARABINE. [Interacting]
     Active Substance: CYTARABINE
     Dosage: 2 G/M2 IV OVER 3 H Q12H FOR 12 DOSES
     Route: 042
  19. POSACONAZOLE [Interacting]
     Active Substance: POSACONAZOLE
     Indication: ANTIFUNGAL PROPHYLAXIS
     Dosage: 300 MG, DAILY
     Route: 048
  20. GRANISETRON [Concomitant]
     Active Substance: GRANISETRON
     Dosage: UNK
  21. INSULIN GLARGINE [Concomitant]
     Active Substance: INSULIN GLARGINE
     Dosage: UNK
  22. PROCHLORPERAZINE. [Concomitant]
     Active Substance: PROCHLORPERAZINE
     Dosage: UNK, AS NEEDED
  23. INSULIN LISPRO [Concomitant]
     Active Substance: INSULIN LISPRO
     Dosage: UNK
  24. SODIUM BICARBONATE. [Concomitant]
     Active Substance: SODIUM BICARBONATE
     Dosage: UNK
  25. BENZONATATE. [Concomitant]
     Active Substance: BENZONATATE
     Dosage: UNK, AS NEEDED

REACTIONS (4)
  - Drug interaction [Not Recovered/Not Resolved]
  - Pancytopenia [Not Recovered/Not Resolved]
  - Aplasia [Unknown]
  - Palmar-plantar erythrodysaesthesia syndrome [Unknown]
